FAERS Safety Report 17919315 (Version 2)
Quarter: 2025Q2

REPORT INFORMATION
  Report Type: Report from Study
  Country: ES (occurrence: ES)
  Receive Date: 20200620
  Receipt Date: 20250620
  Transmission Date: 20250717
  Serious: Yes (Other)
  Sender: AUROBINDO
  Company Number: ES-EMA-DD-20200612-BHARDWAJ_R-121231

PATIENT
  Age: 51 Year
  Sex: Male

DRUGS (4)
  1. LINEZOLID [Suspect]
     Active Substance: LINEZOLID
     Indication: Brain abscess
     Dosage: 600 MILLIGRAM, TWO TIMES A DAY
     Route: 065
  2. LINEZOLID [Suspect]
     Active Substance: LINEZOLID
     Indication: Nocardiosis
  3. AMIKACIN [Suspect]
     Active Substance: AMIKACIN
     Indication: Brain abscess
     Dosage: 1000 MILLIGRAM, TWO TIMES A DAY
     Route: 065
  4. AMIKACIN [Suspect]
     Active Substance: AMIKACIN
     Indication: Nocardiosis

REACTIONS (1)
  - Ototoxicity [Unknown]
